FAERS Safety Report 24805327 (Version 1)
Quarter: 2025Q1

REPORT INFORMATION
  Report Type: Spontaneous
  Country: GR (occurrence: GR)
  Receive Date: 20250103
  Receipt Date: 20250103
  Transmission Date: 20250409
  Serious: Yes (Other)
  Sender: GLAXOSMITHKLINE
  Company Number: GR-GSKCCFEMEA-Case-02161932_AE-92092

PATIENT

DRUGS (1)
  1. BENLYSTA [Suspect]
     Active Substance: BELIMUMAB
     Indication: Product used for unknown indication

REACTIONS (6)
  - Self-destructive behaviour [Unknown]
  - Sleep disorder [Unknown]
  - Nightmare [Unknown]
  - Anxiety [Unknown]
  - Depression [Unknown]
  - Stress [Unknown]
